FAERS Safety Report 9431480 (Version 1)
Quarter: 2013Q3

REPORT INFORMATION
  Report Type: Spontaneous
  Country: HR (occurrence: HR)
  Receive Date: 20130730
  Receipt Date: 20130730
  Transmission Date: 20140515
  Serious: Yes (Other)
  Sender: FDA-Public Use
  Company Number: HR-ROCHE-1253730

PATIENT
  Age: 38 Year
  Sex: 0
  Weight: 100 kg

DRUGS (2)
  1. PEGASYS [Suspect]
     Indication: HEPATITIS C
     Route: 058
     Dates: start: 2012, end: 2013
  2. COPEGUS [Suspect]
     Indication: HEPATITIS C
     Route: 048
     Dates: end: 2013

REACTIONS (10)
  - Hypersensitivity [Recovering/Resolving]
  - Rash [Recovering/Resolving]
  - Allergic oedema [Recovering/Resolving]
  - Lacrimation increased [Recovering/Resolving]
  - Throat irritation [Recovering/Resolving]
  - Dyspnoea [Recovering/Resolving]
  - Epistaxis [Recovering/Resolving]
  - Dysphagia [Recovering/Resolving]
  - Eyelid oedema [Unknown]
  - Pharyngeal oedema [Unknown]
